FAERS Safety Report 5368372-1 (Version None)
Quarter: 2007Q2

REPORT INFORMATION
  Report Type: 
  Country: None (occurrence: None)
  Receive Date: 20070521
  Receipt Date: 20070604
  Transmission Date: 20071010
  Serious: Yes (Death, Hospitalization)
  Sender: FDA-Public Use
  Company Number: B0474195A

PATIENT
  Age: 44 Year
  Sex: Male

DRUGS (4)
  1. PAROXETINE HCL [Suspect]
  2. FLUPHENAZINE [Suspect]
  3. HALOPERIDOL [Suspect]
  4. OLANZAPINE [Suspect]

REACTIONS (8)
  - BRADYPNOEA [None]
  - BRAIN OEDEMA [None]
  - CARDIAC ARREST [None]
  - HYPERGLYCAEMIA [None]
  - HYPONATRAEMIA [None]
  - HYPOTENSION [None]
  - LOSS OF CONSCIOUSNESS [None]
  - PANCREATITIS HAEMORRHAGIC [None]
